FAERS Safety Report 22221071 (Version 1)
Quarter: 2023Q2

REPORT INFORMATION
  Report Type: Report from Study
  Country: KR (occurrence: KR)
  Receive Date: 20230418
  Receipt Date: 20230418
  Transmission Date: 20230722
  Serious: Yes (Other)
  Sender: FDA-Public Use
  Company Number: KR-JNJFOC-20230423608

PATIENT

DRUGS (5)
  1. DARATUMUMAB [Suspect]
     Active Substance: DARATUMUMAB
     Indication: Plasma cell myeloma
     Route: 065
  2. VELCADE [Suspect]
     Active Substance: BORTEZOMIB
     Indication: Plasma cell myeloma
     Route: 065
  3. THALIDOMIDE [Suspect]
     Active Substance: THALIDOMIDE
     Indication: Plasma cell myeloma
     Route: 065
  4. DEXAMETHASONE [Suspect]
     Active Substance: DEXAMETHASONE
     Indication: Plasma cell myeloma
     Route: 065
  5. LENALIDOMIDE [Suspect]
     Active Substance: LENALIDOMIDE
     Indication: Plasma cell myeloma
     Route: 065

REACTIONS (14)
  - Sepsis [Unknown]
  - Neutropenia [Unknown]
  - Neuropathy peripheral [Unknown]
  - Rash [Unknown]
  - Blepharitis [Unknown]
  - Herpes simplex [Unknown]
  - Pruritus [Unknown]
  - Nausea [Unknown]
  - Constipation [Unknown]
  - Infusion related reaction [Unknown]
  - Lymphopenia [Unknown]
  - Oedema [Unknown]
  - Viral infection [Unknown]
  - Bacterial infection [Unknown]
